FAERS Safety Report 7349700-4 (Version None)
Quarter: 2011Q1

REPORT INFORMATION
  Report Type: 
  Country: None (occurrence: None)
  Receive Date: 20110314
  Receipt Date: 20100909
  Transmission Date: 20110831
  Serious: Yes (Hospitalization, Other)
  Sender: FDA-Public Use
  Company Number: US-BAYER-201025788NA

PATIENT
  Sex: Female
  Weight: 90.703 kg

DRUGS (7)
  1. YASMIN [Suspect]
     Indication: PREMENSTRUAL SYNDROME
     Dosage: UNK
     Dates: start: 20080101
  2. YASMIN [Suspect]
  3. YAZ [Suspect]
     Indication: PREMENSTRUAL SYNDROME
     Dosage: UNK
     Route: 048
     Dates: start: 20080101
  4. YAZ [Suspect]
  5. OCELLA [Suspect]
     Indication: PREMENSTRUAL SYNDROME
     Dosage: UNK
     Dates: start: 20080101
  6. OCELLA [Suspect]
  7. CITALOPRAM [Concomitant]
     Dosage: DAILY DOSE 40 MG
     Route: 048

REACTIONS (9)
  - DECREASED APPETITE [None]
  - VOMITING [None]
  - DIARRHOEA [None]
  - NAUSEA [None]
  - CHOLELITHIASIS [None]
  - ABDOMINAL PAIN UPPER [None]
  - GALLBLADDER CHOLESTEROLOSIS [None]
  - MENTAL DISORDER [None]
  - CHOLECYSTITIS [None]
